FAERS Safety Report 9710937 (Version 1)
Quarter: 2013Q4

REPORT INFORMATION
  Report Type: Spontaneous
  Country: US (occurrence: None)
  Receive Date: 20131125
  Receipt Date: 20131125
  Transmission Date: 20140711
  Serious: Yes (Other)
  Sender: FDA-Public Use
  Company Number: None

PATIENT
  Age: 57 Year
  Sex: Male
  Weight: 58.06 kg

DRUGS (1)
  1. LORTAB [Suspect]
     Indication: BACK PAIN
     Dosage: 2 , THREE TIMES A DAY, THREE TIMES DAILY, TAKEN BY MOUTH

REACTIONS (5)
  - Withdrawal syndrome [None]
  - Myalgia [None]
  - Insomnia [None]
  - Restlessness [None]
  - Unevaluable event [None]
